FAERS Safety Report 11398759 (Version 1)
Quarter: 2015Q3

REPORT INFORMATION
  Report Type: Spontaneous
  Country: ES (occurrence: ES)
  Receive Date: 20150820
  Receipt Date: 20150820
  Transmission Date: 20151125
  Serious: Yes (Disabling)
  Sender: FDA-Public Use
  Company Number: ES-AUROBINDO-AUR-APL-2015-07402

PATIENT
  Age: 69 Year
  Sex: Female

DRUGS (3)
  1. VENLAFAXINE [Suspect]
     Active Substance: VENLAFAXINE HYDROCHLORIDE
     Indication: DEPRESSION
     Dosage: 225 MG, DAILY
     Route: 065
  2. MIRTAZAPINE 15MG [Suspect]
     Active Substance: MIRTAZAPINE
     Indication: DEPRESSION
     Dosage: 15 MG, DAILY
     Route: 065
  3. CLONAZEPAM. [Suspect]
     Active Substance: CLONAZEPAM
     Indication: DEPRESSION
     Dosage: 2 MG, DAILY
     Route: 065

REACTIONS (9)
  - Impaired self-care [Unknown]
  - Language disorder [Unknown]
  - Apathy [Unknown]
  - Poisoning [Unknown]
  - Sedation [Unknown]
  - Social avoidant behaviour [Unknown]
  - Treatment noncompliance [Unknown]
  - Feeling abnormal [Unknown]
  - Abulia [Unknown]
